FAERS Safety Report 9364950 (Version 1)
Quarter: 2013Q2

REPORT INFORMATION
  Report Type: Spontaneous
  Country: US (occurrence: US)
  Receive Date: 20130624
  Receipt Date: 20130624
  Transmission Date: 20140414
  Serious: No
  Sender: FDA-Public Use
  Company Number: US-PFIZER INC-2013184950

PATIENT
  Sex: Female

DRUGS (2)
  1. ZYVOX [Suspect]
     Indication: SKIN INFECTION
     Dosage: 600 MG, 2X/DAY
     Dates: start: 20130614
  2. ZYVOX [Suspect]
     Indication: SOFT TISSUE INFECTION

REACTIONS (1)
  - Hallucination [Unknown]
